FAERS Safety Report 13256130 (Version 1)
Quarter: 2017Q1

REPORT INFORMATION
  Report Type: Spontaneous
  Country: CN (occurrence: CN)
  Receive Date: 20170221
  Receipt Date: 20170221
  Transmission Date: 20170428
  Serious: No
  Sender: FDA-Public Use
  Company Number: CN-B. BRAUN MEDICAL INC.-1063370

PATIENT
  Age: 77 Year
  Sex: Female

DRUGS (2)
  1. METOCLOPRAMIDE. [Concomitant]
     Active Substance: METOCLOPRAMIDE
  2. NUTRILIPID I.V. FAT EMULSION [Suspect]
     Active Substance: SOYBEAN OIL
     Indication: NUTRITIONAL SUPPLEMENTATION
     Route: 041
     Dates: start: 20161102, end: 20161106

REACTIONS (3)
  - Nausea [Recovered/Resolved]
  - Vomiting [Recovered/Resolved]
  - Infusion related reaction [None]
